FAERS Safety Report 4753168-1 (Version None)
Quarter: 2005Q3

REPORT INFORMATION
  Report Type: 
  Country: None (occurrence: None)
  Receive Date: 20050823
  Receipt Date: 20050815
  Transmission Date: 20060218
  Serious: No
  Sender: FDA-Public Use
  Company Number: USA0507104183

PATIENT
  Age: 70 Year
  Sex: Male

DRUGS (7)
  1. CYMBALTA [Suspect]
     Indication: MAJOR DEPRESSION
     Dosage: 30 MG
  2. PROZAC [Suspect]
  3. XANAX [Concomitant]
  4. PLAVIX [Concomitant]
  5. TOPROL (METOPROLOL SUCCINATE) [Concomitant]
  6. AMIODARONE [Concomitant]
  7. ASPIRIN [Concomitant]

REACTIONS (1)
  - SUICIDAL IDEATION [None]
